FAERS Safety Report 17781164 (Version 2)
Quarter: 2021Q1

REPORT INFORMATION
  Report Type: Spontaneous
  Country: CA (occurrence: CA)
  Receive Date: 20200514
  Receipt Date: 20210201
  Transmission Date: 20210419
  Serious: Yes (Other)
  Sender: FDA-Public Use
  Company Number: CA-B.I. PHARMACEUTICALS,INC./RIDGEFIELD-2020-BI-023533

PATIENT
  Age: 65 Year
  Sex: Male
  Weight: 68 kg

DRUGS (3)
  1. TECHNETIUM (99M TC) SESTAMIBI [Suspect]
     Active Substance: TECHNETIUM TC-99M SESTAMIBI
     Indication: DIAGNOSTIC PROCEDURE
     Dosage: DOSAGE FORM: KIT?UNIT AND DAILY DOSE: 25.0 MBQ
     Route: 042
     Dates: start: 20190617, end: 20190618
  2. PERSANTINE [Suspect]
     Active Substance: DIPYRIDAMOLE
     Indication: DIAGNOSTIC PROCEDURE
     Dosage: DOSAGE FORM: SOLUTION INTRAVENOUS
     Route: 042
     Dates: start: 20190617, end: 20190618
  3. AMINOPHYLLINE. [Suspect]
     Active Substance: AMINOPHYLLINE
     Indication: DIAGNOSTIC PROCEDURE
     Dosage: DOSAGE FORM: SOLUTION INTRAVENOUS?INJ 50MG/ML
     Route: 042
     Dates: start: 20190617, end: 20190618

REACTIONS (3)
  - Eye swelling [Recovered/Resolved]
  - Erythema [Recovered/Resolved]
  - Rash vesicular [Recovered/Resolved]

NARRATIVE: CASE EVENT DATE: 20190618
